FAERS Safety Report 4310549-8 (Version None)
Quarter: 2004Q1

REPORT INFORMATION
  Report Type: 
  Country: None (occurrence: None)
  Receive Date: 20040303
  Receipt Date: 20040211
  Transmission Date: 20041129
  Serious: Yes (Life-Threatening, Other)
  Sender: FDA-Public Use
  Company Number: ZA-GLAXOSMITHKLINE-B0322948A

PATIENT
  Age: 30 Year
  Sex: Female
  Weight: 68 kg

DRUGS (3)
  1. MALARONE [Suspect]
     Indication: MALARIA PROPHYLAXIS
     Dosage: 1TAB PER DAY
     Dates: start: 20040101, end: 20040101
  2. SALMETEROL XINAFOATE [Concomitant]
     Route: 055
  3. MOMETASONE FUROATE [Concomitant]
     Indication: RHINITIS ALLERGIC
     Route: 045

REACTIONS (13)
  - ABDOMINAL PAIN [None]
  - ANAPHYLACTIC SHOCK [None]
  - ANGIONEUROTIC OEDEMA [None]
  - BACK PAIN [None]
  - DIZZINESS [None]
  - GASTRIC DISORDER [None]
  - HAEMATURIA [None]
  - HEADACHE [None]
  - HYPOTENSION [None]
  - NAUSEA [None]
  - PROTEINURIA [None]
  - RASH [None]
  - URTICARIA [None]
